FAERS Safety Report 24219049 (Version 1)
Quarter: 2024Q3

REPORT INFORMATION
  Report Type: Spontaneous
  Country: US (occurrence: US)
  Receive Date: 20240816
  Receipt Date: 20240816
  Transmission Date: 20241017
  Serious: No
  Sender: MYLAN
  Company Number: US-MYLANLABS-2024M1075045

PATIENT
  Sex: Female

DRUGS (1)
  1. LEVOTHYROXINE [Suspect]
     Active Substance: LEVOTHYROXINE\LEVOTHYROXINE SODIUM
     Indication: Product used for unknown indication
     Dosage: 50 MICROGRAM, QD (ONCE A DAY)
     Route: 065

REACTIONS (5)
  - Muscle spasms [Unknown]
  - Hyperhidrosis [Unknown]
  - Memory impairment [Unknown]
  - Constipation [Unknown]
  - Cough [Unknown]
